APPROVED DRUG PRODUCT: BEXAROTENE
Active Ingredient: BEXAROTENE
Strength: 75MG
Dosage Form/Route: CAPSULE;ORAL
Application: A209886 | Product #001 | TE Code: AB
Applicant: UPSHER SMITH LABORATORIES LLC
Approved: Jul 25, 2018 | RLD: No | RS: No | Type: RX